FAERS Safety Report 6177086-X (Version None)
Quarter: 2009Q2

REPORT INFORMATION
  Report Type: 
  Country: None (occurrence: None)
  Receive Date: 20090430
  Receipt Date: 20090430
  Transmission Date: 20091009
  Serious: Yes (Life-Threatening, Hospitalization)
  Sender: FDA-Public Use
  Company Number: None

PATIENT
  Age: 68 Year
  Sex: Male
  Weight: 79.3795 kg

DRUGS (2)
  1. TREANDA [Suspect]
     Indication: CHRONIC LYMPHOCYTIC LEUKAEMIA STAGE 4
     Dosage: 70 MG PER M^2 DAY 1 AND 2 IV
     Route: 042
     Dates: start: 20081027, end: 20081028
  2. TREANDA [Suspect]
     Indication: THERAPY NAIVE
     Dosage: 70 MG PER M^2 DAY 1 AND 2 IV
     Route: 042
     Dates: start: 20081027, end: 20081028

REACTIONS (6)
  - DIZZINESS [None]
  - FATIGUE [None]
  - FEBRILE NEUTROPENIA [None]
  - GINGIVAL BLEEDING [None]
  - PANCYTOPENIA [None]
  - PERFORMANCE STATUS DECREASED [None]
